FAERS Safety Report 6495245-3 (Version None)
Quarter: 2009Q4

REPORT INFORMATION
  Report Type: 
  Country: None (occurrence: None)
  Receive Date: 20091214
  Receipt Date: 20091207
  Transmission Date: 20100525
  Serious: Yes (Hospitalization)
  Sender: FDA-Public Use
  Company Number: PHHO2009KR15198

PATIENT
  Sex: Male
  Weight: 55.9 kg

DRUGS (2)
  1. AFINITOR [Suspect]
     Indication: GASTRIC CANCER
     Dosage: 5 MG, BID
     Route: 048
     Dates: start: 20091116, end: 20091204
  2. XELODA [Suspect]
     Indication: GASTRIC CANCER
     Dosage: 800 MG, BID
     Route: 048
     Dates: start: 20091116, end: 20091129

REACTIONS (4)
  - ANAL ABSCESS [None]
  - ERYTHEMA [None]
  - INCISIONAL DRAINAGE [None]
  - SWELLING [None]
